FAERS Safety Report 8297647-1 (Version None)
Quarter: 2012Q2

REPORT INFORMATION
  Report Type: 
  Country: None (occurrence: None)
  Receive Date: 20120419
  Receipt Date: 20120412
  Transmission Date: 20120825
  Serious: Yes (Other)
  Sender: FDA-Public Use
  Company Number: AU-PFIZER INC-2012090545

PATIENT
  Sex: Male

DRUGS (1)
  1. LYRICA [Suspect]
     Dosage: UNK

REACTIONS (4)
  - ABNORMAL BEHAVIOUR [None]
  - IRRITABILITY [None]
  - SUICIDAL IDEATION [None]
  - HOMICIDAL IDEATION [None]
